FAERS Safety Report 20404604 (Version 1)
Quarter: 2022Q1

REPORT INFORMATION
  Report Type: Spontaneous
  Country: US (occurrence: None)
  Receive Date: 20220128
  Receipt Date: 20220128
  Transmission Date: 20220424
  Serious: No
  Sender: FDA-Public Use
  Company Number: None

PATIENT
  Age: 87 Year
  Sex: Male
  Weight: 61.65 kg

DRUGS (10)
  1. ABIRATERONE ACETATE [Suspect]
     Active Substance: ABIRATERONE ACETATE
     Indication: Bone cancer
     Dosage: FREQUENCY : DAILY;?
     Route: 048
     Dates: start: 20210611, end: 20211203
  2. ENALAPRIL [Concomitant]
     Active Substance: ENALAPRIL
  3. Verapamil 120mg [Concomitant]
  4. GABAPENTIN [Concomitant]
     Active Substance: GABAPENTIN
  5. TAMSULOSIN [Concomitant]
     Active Substance: TAMSULOSIN
  6. METFORMIN HYDROCHLORIDE [Concomitant]
     Active Substance: METFORMIN HYDROCHLORIDE
  7. ALLOPURINOL [Concomitant]
     Active Substance: ALLOPURINOL
  8. Casodex 50mg [Concomitant]
  9. PREDNISONE [Concomitant]
     Active Substance: PREDNISONE
  10. ASPIRIN [Concomitant]
     Active Substance: ASPIRIN

REACTIONS (1)
  - Abdominal discomfort [None]

NARRATIVE: CASE EVENT DATE: 20220128
